FAERS Safety Report 14354351 (Version 1)
Quarter: 2018Q1

REPORT INFORMATION
  Report Type: Spontaneous
  Country: US (occurrence: US)
  Receive Date: 20180104
  Receipt Date: 20180104
  Transmission Date: 20180509
  Serious: Yes (Hospitalization)
  Sender: FDA-Public Use
  Company Number: None

PATIENT
  Age: 46 Year

DRUGS (1)
  1. IBRANCE [Suspect]
     Active Substance: PALBOCICLIB
     Dosage: CYCLE
     Route: 048
     Dates: start: 20171114

REACTIONS (4)
  - Nausea [None]
  - Fatigue [None]
  - Dyspnoea [None]
  - White blood cell count decreased [None]
